FAERS Safety Report 20075321 (Version 1)
Quarter: 2021Q4

REPORT INFORMATION
  Report Type: Spontaneous
  Country: FR (occurrence: FR)
  Receive Date: 20211116
  Receipt Date: 20211116
  Transmission Date: 20220303
  Serious: Yes (Hospitalization)
  Sender: FDA-Public Use
  Company Number: None

PATIENT
  Age: 61 Year
  Sex: Female

DRUGS (1)
  1. KEYTRUDA [Suspect]
     Active Substance: PEMBROLIZUMAB
     Indication: HER2 mutant non-small cell lung cancer
     Dosage: NOT SPECIFIED
     Route: 042
     Dates: start: 201804, end: 20210729

REACTIONS (1)
  - Encephalitis allergic [Recovering/Resolving]

NARRATIVE: CASE EVENT DATE: 20210601
